FAERS Safety Report 8924194 (Version 1)
Quarter: 2012Q4

REPORT INFORMATION
  Report Type: 
  Country: CN (occurrence: CN)
  Receive Date: 20121126
  Receipt Date: 20121126
  Transmission Date: 20130627
  Serious: Yes (Life-Threatening, Other)
  Sender: FDA-Public Use
  Company Number: CN-BAXTER-2012BAX024348

PATIENT
  Age: 47 Year
  Sex: Male
  Weight: 59 kg

DRUGS (5)
  1. PERITONEAL DIALYSIS SOLUTION (LACTATE- G 1.5%) [Suspect]
     Indication: UREMIA
     Route: 033
     Dates: start: 20120127, end: 20121015
  2. PERITONEAL DIALYSIS SOLUTION (LACTATE- G 1.5%) [Suspect]
     Route: 033
     Dates: start: 20121016
  3. PERITONEAL DIALYSIS SOLUTION (LACTATE- G2.5%) [Suspect]
     Indication: UREMIA
     Route: 033
     Dates: start: 20121016
  4. DIOVAN [Concomitant]
     Indication: HYPERTENSION
     Route: 048
     Dates: start: 20111229
  5. CALTRATE [Concomitant]
     Indication: PHOSPHORUS
     Route: 048
     Dates: start: 20111229

REACTIONS (6)
  - Cerebral haemorrhage [Not Recovered/Not Resolved]
  - Chest discomfort [Unknown]
  - Dyspnoea [Unknown]
  - Hypertension [Unknown]
  - Respiratory failure [Unknown]
  - Coma [Unknown]
